FAERS Safety Report 9672377 (Version 2)
Quarter: 2013Q4

REPORT INFORMATION
  Report Type: Report from Study
  Country: FR (occurrence: FR)
  Receive Date: 20131106
  Receipt Date: 20131112
  Transmission Date: 20140711
  Serious: Yes (Other)
  Sender: FDA-Public Use
  Company Number: FR-UCBSA-102247

PATIENT
  Age: 66 Year
  Sex: Female
  Weight: 84 kg

DRUGS (6)
  1. CIMZIA [Suspect]
     Indication: RHEUMATOID ARTHRITIS
     Route: 058
     Dates: start: 20130227, end: 20130430
  2. CORTANCYL [Concomitant]
     Indication: RHEUMATOID ARTHRITIS
     Dates: start: 1972
  3. VOLTARENE [Concomitant]
     Indication: RHEUMATOID ARTHRITIS
     Dates: start: 2000
  4. FOSAVANCE [Concomitant]
     Indication: OSTEOPOROSIS
     Dosage: DOSE PER INTAKE: 5600
     Dates: start: 2006
  5. EFFERALGAN [Concomitant]
     Indication: RHEUMATOID ARTHRITIS
     Dates: start: 1980
  6. LANZOR [Concomitant]
     Indication: ABDOMINAL PAIN UPPER
     Dates: start: 1990

REACTIONS (2)
  - Asthma [Recovered/Resolved]
  - Dry mouth [Recovered/Resolved]
